FAERS Safety Report 9116972 (Version 1)
Quarter: 2013Q1

REPORT INFORMATION
  Report Type: Spontaneous
  Country: US (occurrence: US)
  Receive Date: 20130225
  Receipt Date: 20130225
  Transmission Date: 20140127
  Serious: Yes (Other)
  Sender: FDA-Public Use
  Company Number: US-SANOFI-AVENTIS-2013SA015840

PATIENT
  Age: 70 Year
  Sex: Male

DRUGS (2)
  1. LANTUS [Suspect]
     Indication: DIABETES MELLITUS
     Dosage: DOSE:26 UNIT(S)
     Route: 051
     Dates: start: 2004
  2. SOLOSTAR [Suspect]
     Indication: DIABETES MELLITUS

REACTIONS (3)
  - Cerebrovascular accident [Unknown]
  - Eye disorder [Unknown]
  - Eye operation [Unknown]
